FAERS Safety Report 14130232 (Version 1)
Quarter: 2017Q4

REPORT INFORMATION
  Report Type: Spontaneous
  Country: FR (occurrence: FR)
  Receive Date: 20171026
  Receipt Date: 20171026
  Transmission Date: 20180321
  Serious: Yes (Other)
  Sender: FDA-Public Use
  Company Number: FR-MERCK KGAA-2031620

PATIENT
  Age: 17 Year
  Sex: Male

DRUGS (3)
  1. LEVOTHYROX [Suspect]
     Active Substance: LEVOTHYROXINE
     Route: 048
     Dates: start: 20170810, end: 20170826
  2. EUTHYRAL(NOVOTHYRAL) [Concomitant]
     Dates: start: 20170827
  3. NOVOTHYROX [Suspect]
     Active Substance: LEVOTHYROXINE SODIUM
     Indication: HYPOTHYROIDISM
     Route: 048
     Dates: start: 20170601, end: 20170809

REACTIONS (8)
  - Somnolence [Recovered/Resolved]
  - Hyperhidrosis [Recovered/Resolved]
  - Diarrhoea [Recovered/Resolved]
  - Irritability [Recovered/Resolved]
  - Weight increased [Recovering/Resolving]
  - Blood thyroid stimulating hormone normal [Recovered/Resolved]
  - Sleep disorder [Recovered/Resolved]
  - Headache [Recovered/Resolved]

NARRATIVE: CASE EVENT DATE: 20170610
